FAERS Safety Report 8398488-7 (Version None)
Quarter: 2012Q2

REPORT INFORMATION
  Report Type: 
  Country: None (occurrence: None)
  Receive Date: 20120531
  Receipt Date: 20110831
  Transmission Date: 20120825
  Serious: Yes (Other)
  Sender: FDA-Public Use
  Company Number: DE-CELGENEUS-062-21880-12050478

PATIENT

DRUGS (2)
  1. DEXAMETHASONE [Suspect]
     Indication: MULTIPLE MYELOMA
     Route: 065
  2. REVLIMID [Suspect]
     Indication: MULTIPLE MYELOMA
     Dosage: 5MG-25MG
     Route: 048

REACTIONS (12)
  - BONE MARROW DISORDER [None]
  - CARDIAC DISORDER [None]
  - GASTROINTESTINAL DISORDER [None]
  - METABOLIC DISORDER [None]
  - ANGIOPATHY [None]
  - GENERAL SYMPTOM [None]
  - NERVOUS SYSTEM DISORDER [None]
  - SKIN DISORDER [None]
  - INFECTION [None]
  - RESPIRATORY DISORDER [None]
  - MUSCULOSKELETAL DISORDER [None]
  - RENAL DISORDER [None]
